FAERS Safety Report 9969046 (Version 1)
Quarter: 2014Q1

REPORT INFORMATION
  Report Type: Report from Study
  Country: US (occurrence: US)
  Receive Date: 20140306
  Receipt Date: 20140306
  Transmission Date: 20141002
  Serious: No
  Sender: FDA-Public Use
  Company Number: US-ABBVIE-13P-163-1141953-00

PATIENT
  Age: 61 Year
  Sex: Male

DRUGS (6)
  1. HUMIRA [Suspect]
     Indication: PSORIASIS
     Route: 058
     Dates: start: 201307
  2. FISH OIL [Concomitant]
     Indication: VITAMIN SUPPLEMENTATION
  3. ONE A DAY MENS [Concomitant]
     Indication: VITAMIN SUPPLEMENTATION
  4. DOXEPIN [Concomitant]
     Indication: PRURITUS
  5. PRILOSEC [Concomitant]
     Indication: DYSPEPSIA
  6. NORVASC [Concomitant]
     Indication: HYPERTENSION

REACTIONS (1)
  - Psoriasis [Not Recovered/Not Resolved]
